FAERS Safety Report 4625747-3 (Version None)
Quarter: 2005Q1

REPORT INFORMATION
  Report Type: 
  Country: None (occurrence: None)
  Receive Date: 20050330
  Receipt Date: 20050316
  Transmission Date: 20050727
  Serious: Yes (Hospitalization)
  Sender: FDA-Public Use
  Company Number: GBS050316939

PATIENT
  Age: 65 Year
  Sex: Female
  Weight: 80 kg

DRUGS (4)
  1. ZYPREXA [Suspect]
     Dosage: 2.5 MG
  2. MIRTAZAPINE [Concomitant]
  3. PREDNISOLONE [Concomitant]
  4. TIMOLOL MALEATE [Concomitant]

REACTIONS (3)
  - CONFUSIONAL STATE [None]
  - INAPPROPRIATE ANTIDIURETIC HORMONE SECRETION [None]
  - PSYCHOTIC DISORDER [None]
